FAERS Safety Report 18206943 (Version 2)
Quarter: 2020Q3

REPORT INFORMATION
  Report Type: Report from Study
  Country: BR (occurrence: BR)
  Receive Date: 20200828
  Receipt Date: 20200903
  Transmission Date: 20201103
  Serious: Yes (Other)
  Sender: FDA-Public Use
  Company Number: NVSC2020BR100760

PATIENT
  Age: 46 Year
  Sex: Female

DRUGS (3)
  1. COSENTYX [Suspect]
     Active Substance: SECUKINUMAB
     Dosage: 300 MG, UNKNOWN
     Route: 065
     Dates: end: 202007
  2. COSENTYX [Suspect]
     Active Substance: SECUKINUMAB
     Dosage: UNK
     Route: 065
     Dates: start: 20200328
  3. COSENTYX [Suspect]
     Active Substance: SECUKINUMAB
     Indication: PSORIATIC ARTHROPATHY
     Dosage: UNK
     Route: 065
     Dates: start: 20191011

REACTIONS (14)
  - Skin exfoliation [Recovered/Resolved with Sequelae]
  - Drug ineffective [Not Recovered/Not Resolved]
  - General physical health deterioration [Unknown]
  - Psoriasis [Recovered/Resolved]
  - Hypersensitivity [Recovered/Resolved]
  - Dysstasia [Not Recovered/Not Resolved]
  - Arthralgia [Not Recovered/Not Resolved]
  - Gait disturbance [Unknown]
  - Haemorrhage [Recovered/Resolved]
  - Illness [Recovered/Resolved]
  - Pain in extremity [Unknown]
  - Inflammation [Not Recovered/Not Resolved]
  - Skin exfoliation [Recovered/Resolved]
  - Skeletal injury [Not Recovered/Not Resolved]

NARRATIVE: CASE EVENT DATE: 202003
